FAERS Safety Report 9244007 (Version 1)
Quarter: 2013Q1

REPORT INFORMATION
  Report Type: Spontaneous
  Country: US (occurrence: None)
  Receive Date: 20121123
  Receipt Date: 20121123
  Transmission Date: 20140127
  Serious: Yes (Hospitalization)
  Sender: FDA-Public Use
  Company Number: 354410

PATIENT
  Age: 50 Year
  Sex: Female
  Weight: 73.5 kg

DRUGS (12)
  1. VICTOZA (LIRAGLUTIDE) SOLUTION FOR INJECTION, 6MG/ML [Suspect]
     Indication: PRODUCT USED FOR UNKNOWN INDICATION
     Route: 058
     Dates: start: 20120502, end: 20120503
  2. LANTUS (INSULIN GLARGINE) [Concomitant]
  3. METFORMIN (METFORMIN) [Concomitant]
  4. NORVASC (AMLODIPINE BESILATE) [Concomitant]
  5. LOSARTAN (LOSARTAN) [Concomitant]
  6. HYDROCHLOROTHIAZIDE (HYDROCHLOROTHIAZIDE) [Concomitant]
  7. LORTAB?/00607101/ (HYDROCODONE BITARTRATE, PARACETAMOL) [Concomitant]
  8. CYMBALTA (DULOXETINE HYDROCHLORIDE) [Concomitant]
  9. GABAPENTIN (GABAPENTIN) [Concomitant]
  10. HYDROCODONE/ACETAMINOPHEN?/00607101/ (HYDROCODONE BITARTRATE, PARACETAMOL) [Concomitant]
  11. COLESEVELAM (COLESEVELAM) [Concomitant]
  12. PRAVASTATIN (PRAVASTATIN) [Concomitant]

REACTIONS (2)
  - Dehydration [None]
  - Vomiting [None]
